FAERS Safety Report 15499643 (Version 2)
Quarter: 2020Q1

REPORT INFORMATION
  Report Type: Report from Study
  Country: BE (occurrence: BE)
  Receive Date: 20181015
  Receipt Date: 20200130
  Transmission Date: 20200409
  Serious: Yes (Hospitalization)
  Sender: FDA-Public Use
  Company Number: PHHY2018BE125198

PATIENT
  Sex: Female

DRUGS (1)
  1. ACLASTA [Suspect]
     Active Substance: ZOLEDRONIC ACID
     Indication: OSTEOPOROSIS
     Dosage: 5 MG/ 100 ML, Q12MO (1 FLACON ONCE A YEAR)
     Route: 042
     Dates: start: 20181029

REACTIONS (3)
  - Breast cancer [Unknown]
  - Cerebrovascular accident [Unknown]
  - Ankle fracture [Recovering/Resolving]
